FAERS Safety Report 10934593 (Version 1)
Quarter: 2015Q1

REPORT INFORMATION
  Report Type: Spontaneous
  Country: US (occurrence: US)
  Receive Date: 20150320
  Receipt Date: 20150320
  Transmission Date: 20150721
  Serious: No
  Sender: FDA-Public Use
  Company Number: US-B.I. PHARMACEUTICALS,INC./RIDGEFIELD-2015-BI-12435BP

PATIENT
  Age: 88 Year
  Sex: Female
  Weight: 75 kg

DRUGS (2)
  1. COMBIVENT [Suspect]
     Active Substance: ALBUTEROL SULFATE\IPRATROPIUM BROMIDE
     Indication: PRODUCT USED FOR UNKNOWN INDICATION
     Dosage: STRENGTH: 20 MCG /100 MCG; DAILY DOSE: 80 MCG/400 MCG
     Route: 055
     Dates: start: 2013
  2. VALSARTAN/HCT [Concomitant]
     Indication: HYPERTENSION
     Dosage: STRENGTH: 160/12.5MG; DAILY DOSE: 320/25 MG
     Route: 048

REACTIONS (1)
  - Peripheral coldness [Recovered/Resolved]

NARRATIVE: CASE EVENT DATE: 20150120
